FAERS Safety Report 6464055-5 (Version None)
Quarter: 2009Q4

REPORT INFORMATION
  Report Type: 
  Country: None (occurrence: None)
  Receive Date: 20091201
  Receipt Date: 20091120
  Transmission Date: 20100525
  Serious: Yes (Other)
  Sender: FDA-Public Use
  Company Number: DE-AMGEN-US376258

PATIENT
  Age: 41 Year
  Sex: Female
  Weight: 43 kg

DRUGS (7)
  1. ENBREL [Suspect]
     Indication: RHEUMATOID ARTHRITIS
     Route: 058
     Dates: start: 20020101
  2. ENBREL [Suspect]
     Route: 058
  3. VITAMIN B12 [Concomitant]
  4. FERROUS SULFATE TAB [Concomitant]
  5. IDEOS [Concomitant]
  6. GLUCOCORTICOIDS [Concomitant]
     Route: 048
  7. L-THYROXIN [Concomitant]

REACTIONS (9)
  - BREAST MASS [None]
  - CERVIX DISORDER [None]
  - DECREASED APPETITE [None]
  - FATIGUE [None]
  - MENORRHAGIA [None]
  - PNEUMONIA [None]
  - PULMONARY MASS [None]
  - TACHYCARDIA [None]
  - WEIGHT DECREASED [None]
